FAERS Safety Report 6792606-X (Version None)
Quarter: 2010Q2

REPORT INFORMATION
  Report Type: 
  Country: None (occurrence: None)
  Receive Date: 20100624
  Receipt Date: 20080908
  Transmission Date: 20101027
  Serious: No
  Sender: FDA-Public Use
  Company Number: US-PFIZER INC-2008074978

PATIENT
  Sex: Female

DRUGS (1)
  1. SYNAREL [Suspect]
     Dates: start: 20080901

REACTIONS (1)
  - DRUG INEFFECTIVE [None]
